FAERS Safety Report 8935437 (Version 1)
Quarter: 2012Q4

REPORT INFORMATION
  Report Type: Spontaneous
  Country: US (occurrence: None)
  Receive Date: 20121128
  Receipt Date: 20121128
  Transmission Date: 20130627
  Serious: Yes (Hospitalization)
  Sender: FDA-Public Use
  Company Number: None

PATIENT
  Age: 68 Year
  Sex: Male
  Weight: 115.9 kg

DRUGS (20)
  1. XELODA [Suspect]
     Indication: PANCREATIC CANCER
     Dosage: 2000MG BID PO
     Route: 048
  2. WARFARIN [Suspect]
     Indication: CORONARY ARTERY DISEASE
     Dosage: 7.5 mg MTWThF PO
  3. WARFARIN [Suspect]
     Indication: DVT
     Dosage: 7.5 mg MTWThF PO
  4. WARFARIN [Suspect]
     Indication: PULMONARY EMBOLISM
     Dosage: 7.5 mg MTWThF PO
  5. ASA [Suspect]
     Indication: CORONARY ARTERY DISEASE
     Dosage: 10 MG /SS PO
     Route: 048
  6. METFORMIN [Concomitant]
  7. KCL [Concomitant]
  8. AMLODIPINE [Concomitant]
  9. LIPITOR [Concomitant]
  10. MVI [Concomitant]
  11. FERROUS SULFATE [Concomitant]
  12. VIT B12 [Concomitant]
  13. COREG [Concomitant]
  14. ENALAPRIL [Concomitant]
  15. FUROSEMIDE [Concomitant]
  16. NOVOLOG [Concomitant]
  17. LEVEMIR [Concomitant]
  18. MIRALAX [Concomitant]
  19. CERTIRIZINE [Concomitant]
  20. FLONASE [Concomitant]

REACTIONS (6)
  - Liver function test abnormal [None]
  - Rectal haemorrhage [None]
  - Anaemia [None]
  - International normalised ratio increased [None]
  - Gastric ulcer [None]
  - Tumour invasion [None]
